FAERS Safety Report 6153366-9 (Version None)
Quarter: 2009Q2

REPORT INFORMATION
  Report Type: 
  Country: None (occurrence: None)
  Receive Date: 20090413
  Receipt Date: 20090401
  Transmission Date: 20091009
  Serious: Yes (Other)
  Sender: FDA-Public Use
  Company Number: US-PFIZER INC-2009192699

PATIENT
  Sex: Male
  Weight: 113.38 kg

DRUGS (7)
  1. LYRICA [Suspect]
     Indication: DIABETIC NEUROPATHY
     Dosage: DAILY, EVERYDAY
     Dates: start: 20080101
  2. ACTOS [Suspect]
     Indication: DIABETES MELLITUS
     Dosage: UNK
     Dates: start: 20080101
  3. ALL OTHER THERAPEUTIC PRODUCTS [Concomitant]
     Indication: GLAUCOMA
     Dosage: UNK
  4. TERAZOSIN [Concomitant]
     Dosage: UNK
  5. VITAMIN B COMPLEX CAP [Concomitant]
     Dosage: UNK
  6. ASCORBIC ACID [Concomitant]
     Dosage: UNK
  7. POTASSIUM [Concomitant]
     Dosage: UNK

REACTIONS (8)
  - AORTIC ANEURYSM [None]
  - CATARACT [None]
  - EYE DISORDER [None]
  - GRIP STRENGTH DECREASED [None]
  - MEMORY IMPAIRMENT [None]
  - OEDEMA PERIPHERAL [None]
  - SKIN LESION [None]
  - VISION BLURRED [None]
